FAERS Safety Report 6443511-X (Version None)
Quarter: 2009Q4

REPORT INFORMATION
  Report Type: 
  Country: None (occurrence: None)
  Receive Date: 20091116
  Receipt Date: 20091104
  Transmission Date: 20100525
  Serious: Yes (Other)
  Sender: FDA-Public Use
  Company Number: 427331

PATIENT
  Age: 22 Year
  Sex: Female

DRUGS (6)
  1. VINCRISTINE [Suspect]
     Indication: EWING'S SARCOMA
  2. ETOPOSIDE [Suspect]
     Indication: EWING'S SARCOMA
  3. DOXORUBICIN HCL [Suspect]
     Indication: EWING'S SARCOMA
  4. CYCLOPHOSPHAMIDE [Suspect]
     Indication: EWING'S SARCOMA
  5. CYCLOPHOSPHAMIDE [Suspect]
     Indication: EWING'S SARCOMA METASTATIC
  6. IDARUBICIN HCL [Concomitant]

REACTIONS (2)
  - ACUTE MYELOID LEUKAEMIA [None]
  - EWING'S SARCOMA METASTATIC [None]
